FAERS Safety Report 8228469-5 (Version None)
Quarter: 2012Q1

REPORT INFORMATION
  Report Type: 
  Country: None (occurrence: None)
  Receive Date: 20120322
  Receipt Date: 20110609
  Transmission Date: 20120608
  Serious: No
  Sender: FDA-Public Use
  Company Number: US-BRISTOL-MYERS SQUIBB COMPANY-15818438

PATIENT
  Age: 74 Year
  Sex: Male
  Weight: 78 kg

DRUGS (11)
  1. CRESTOR [Concomitant]
  2. LANTUS [Concomitant]
     Indication: DIABETES MELLITUS
  3. SOTALOL HCL [Concomitant]
     Indication: ARRHYTHMIA
  4. SPIRONOLACTONE [Concomitant]
     Indication: OEDEMA
  5. ERBITUX [Suspect]
     Dosage: NO OF DOSES:3
  6. PLAVIX [Concomitant]
  7. XELODA [Concomitant]
     Dosage: TWO WEEKS OUT OF THREE
  8. METFORMIN HCL [Concomitant]
     Indication: DIABETES MELLITUS
  9. LEVOTHYROXINE SODIUM [Concomitant]
  10. ASPIRIN [Concomitant]
  11. TESTOSTERONE [Concomitant]
     Indication: BLOOD TESTOSTERONE DECREASED

REACTIONS (1)
  - ACNE [None]
